FAERS Safety Report 7418373-4 (Version None)
Quarter: 2011Q2

REPORT INFORMATION
  Report Type: 
  Country: None (occurrence: None)
  Receive Date: 20110415
  Receipt Date: 20110408
  Transmission Date: 20111010
  Serious: Yes (Hospitalization)
  Sender: FDA-Public Use
  Company Number: B0711658A

PATIENT
  Sex: Female

DRUGS (8)
  1. ZELITREX [Suspect]
     Indication: PRODUCT USED FOR UNKNOWN INDICATION
     Route: 048
     Dates: end: 20101103
  2. FLUCONAZOLE [Suspect]
     Indication: FUNGAL OESOPHAGITIS
     Route: 048
     Dates: start: 20101009, end: 20101104
  3. IMUREL [Concomitant]
     Indication: ENTEROCOLITIS HAEMORRHAGIC
  4. REMICADE [Concomitant]
     Indication: ENTEROCOLITIS HAEMORRHAGIC
  5. CORTICOID [Concomitant]
     Indication: ENTEROCOLITIS HAEMORRHAGIC
  6. TRIFLUCAN [Concomitant]
     Indication: FUNGAL OESOPHAGITIS
     Route: 065
     Dates: start: 20100901, end: 20101009
  7. NEXIUM [Suspect]
     Indication: PRODUCT USED FOR UNKNOWN INDICATION
     Route: 048
     Dates: end: 20101102
  8. HUMIRA [Concomitant]
     Indication: ENTEROCOLITIS HAEMORRHAGIC
     Dates: start: 20100501

REACTIONS (3)
  - PYREXIA [None]
  - AGRANULOCYTOSIS [None]
  - TONSILLITIS [None]
